FAERS Safety Report 13449931 (Version 1)
Quarter: 2017Q2

REPORT INFORMATION
  Report Type: Spontaneous
  Country: US (occurrence: US)
  Receive Date: 20170417
  Receipt Date: 20170417
  Transmission Date: 20170830
  Serious: No
  Sender: FDA-Public Use
  Company Number: US-BION-20160305

PATIENT
  Sex: Female
  Weight: 61.24 kg

DRUGS (2)
  1. ASPIRIN 81 MG [Concomitant]
     Active Substance: ASPIRIN
     Indication: CARDIAC DISORDER
  2. ALEVE [Suspect]
     Active Substance: NAPROXEN SODIUM
     Dosage: 1 DSF QID
     Route: 048
     Dates: start: 20160711, end: 20160714

REACTIONS (2)
  - Expired product administered [Unknown]
  - Product use in unapproved indication [Unknown]

NARRATIVE: CASE EVENT DATE: 20160711
